FAERS Safety Report 5198052-7 (Version None)
Quarter: 2006Q4

REPORT INFORMATION
  Report Type: 
  Country: None (occurrence: None)
  Receive Date: 20061228
  Receipt Date: 20061220
  Transmission Date: 20070319
  Serious: Yes (Life-Threatening)
  Sender: FDA-Public Use
  Company Number: 06H-163-0311577-00

PATIENT
  Sex: Male

DRUGS (1)
  1. PRECEDEX [Suspect]
     Indication: SEDATION
     Dosage: SEE IMAGE, INTRAVENOUS
     Route: 042
     Dates: start: 20061201, end: 20061201

REACTIONS (5)
  - BRADYCARDIA [None]
  - HYPOTENSION [None]
  - PROCEDURAL COMPLICATION [None]
  - VENTRICULAR EXTRASYSTOLES [None]
  - VENTRICULAR TACHYCARDIA [None]
